FAERS Safety Report 5729745-8 (Version None)
Quarter: 2008Q2

REPORT INFORMATION
  Report Type: 
  Country: None (occurrence: None)
  Receive Date: 20080506
  Receipt Date: 20080506
  Transmission Date: 20081010
  Serious: Yes (Other)
  Sender: FDA-Public Use
  Company Number: IT-BOEHRINGER INGELHEIM GMBH, GERMANY-2008-DE-02601BY

PATIENT
  Sex: Male

DRUGS (4)
  1. PRITOR [Suspect]
     Indication: HYPERTENSION
     Route: 048
     Dates: start: 20071125, end: 20071202
  2. SIMVASTATIN [Suspect]
     Indication: HYPERCHOLESTEROLAEMIA
     Route: 048
     Dates: start: 20071125, end: 20071202
  3. ATENOL [Concomitant]
     Indication: DRUG USE FOR UNKNOWN INDICATION
     Route: 048
  4. HUMALOG [Concomitant]
     Indication: DRUG USE FOR UNKNOWN INDICATION
     Dosage: 44 IU, 6 IU
     Route: 058

REACTIONS (3)
  - OEDEMA PERIPHERAL [None]
  - SKIN EXFOLIATION [None]
  - SWELLING FACE [None]
